FAERS Safety Report 9395816 (Version 1)
Quarter: 2013Q3

REPORT INFORMATION
  Report Type: Spontaneous
  Country: US (occurrence: US)
  Receive Date: 20130711
  Receipt Date: 20130711
  Transmission Date: 20140515
  Serious: No
  Sender: FDA-Public Use
  Company Number: US-COVIDIEN/TYCO HEALTHCARE/MALLINCKRODT-T201301701

PATIENT
  Age: 51 Year
  Sex: Male
  Weight: 79.37 kg

DRUGS (2)
  1. OXYCODONE/ACETAMINOPHEN [Suspect]
     Indication: SPINAL DISORDER
     Dosage: 10/325 MG, UP TO 6 TIMES PER DAY
     Route: 048
     Dates: start: 20130411
  2. XANAX [Concomitant]
     Indication: SLEEP DISORDER
     Dosage: 1 MG HS
     Route: 048

REACTIONS (3)
  - Agitation [Not Recovered/Not Resolved]
  - Feeling abnormal [Unknown]
  - Nausea [Not Recovered/Not Resolved]
